FAERS Safety Report 4550738-0 (Version None)
Quarter: 2004Q4

REPORT INFORMATION
  Report Type: 
  Country: None (occurrence: None)
  Receive Date: 20041217
  Receipt Date: 20040923
  Transmission Date: 20050328
  Serious: No
  Sender: FDA-Public Use
  Company Number: 2004-BP-08615BP(0)

PATIENT
  Age: 66 Year
  Sex: Female

DRUGS (6)
  1. SPIRIVA [Suspect]
     Indication: CHRONIC OBSTRUCTIVE AIRWAYS DISEASE
     Dosage: 18 MCG *18 MCG, 1 PUFF/DAY) IH
     Route: 055
     Dates: start: 20040910, end: 20040929
  2. SYNTHROID [Concomitant]
  3. ADVAIR (SERETIDE MITE) [Concomitant]
  4. PREDNISONE [Concomitant]
  5. COUGH SYRUP [Concomitant]
  6. SPIRIVA [Suspect]

REACTIONS (3)
  - ABDOMINAL PAIN [None]
  - BLADDER DISORDER [None]
  - LOOSE STOOLS [None]
